FAERS Safety Report 11641671 (Version 1)
Quarter: 2015Q4

REPORT INFORMATION
  Report Type: Spontaneous
  Country: US (occurrence: US)
  Receive Date: 20151019
  Receipt Date: 20151019
  Transmission Date: 20160304
  Serious: No
  Sender: FDA-Public Use
  Company Number: US-ASTRAZENECA-2015SE98362

PATIENT
  Sex: Female

DRUGS (1)
  1. NEXIUM [Suspect]
     Active Substance: ESOMEPRAZOLE MAGNESIUM
     Route: 048

REACTIONS (7)
  - Heart rate irregular [Unknown]
  - Muscle spasms [Unknown]
  - Muscle twitching [Unknown]
  - Poor quality sleep [Unknown]
  - Muscular weakness [Unknown]
  - Anxiety [Unknown]
  - Fatigue [Unknown]
